FAERS Safety Report 10186678 (Version 2)
Quarter: 2014Q2

REPORT INFORMATION
  Report Type: Spontaneous
  Country: US (occurrence: US)
  Receive Date: 20140521
  Receipt Date: 20140611
  Transmission Date: 20141212
  Serious: Yes (Hospitalization, Other)
  Sender: FDA-Public Use
  Company Number: US-RB-067577-14

PATIENT
  Age: 33 Year
  Sex: Female

DRUGS (7)
  1. SUBOXONE TABLET [Suspect]
     Indication: DRUG DEPENDENCE
     Dosage: DOSING DETAILS UNKNOWN; TAKING VARIOUS DOSES AT VARIOUS TIMES DEPENDING ON AVAILABILITY
     Route: 060
     Dates: start: 2011, end: 2013
  2. SUBOXONE FILM [Suspect]
     Indication: DRUG DEPENDENCE
     Dosage: SUBOXONE FILM; DOSING DETAILS UNKNOWN; TAKING VARIOUS DOSES AT VARIOUS TIMES
     Route: 060
     Dates: start: 2013
  3. OPIOIDS [Suspect]
     Indication: DRUG DEPENDENCE
     Dosage: DOSING DETAILS UNKNOWN; TAKING WHEN SUBOXONE WAS NOT AVAILABLE
     Route: 048
     Dates: start: 2009
  4. EFFEXOR [Concomitant]
     Indication: DEPRESSION
     Dosage: DOSING DETAILS UNKNOWN; TAKEN DAILY
     Route: 048
     Dates: start: 2007
  5. HYDROXIZINE [Concomitant]
     Indication: PANIC ATTACK
     Dosage: DOSING DETAILS UNKNOWN; TAKEN AS NEEDED
     Route: 048
  6. MELATONIN [Concomitant]
     Indication: INSOMNIA
     Dosage: DOSING DETAILS UNKNOWN; TAKEN AS NEEDED
     Route: 048
  7. NICOTINE [Concomitant]
     Indication: PRODUCT USED FOR UNKNOWN INDICATION
     Dosage: THE PATIENT WAS SMOKING 1/3 PACK OF CIGARETTES A DAY
     Route: 055

REACTIONS (9)
  - Substance abuse [Not Recovered/Not Resolved]
  - Drug dependence [Not Recovered/Not Resolved]
  - Pyrexia [Recovered/Resolved]
  - Tremor [Recovered/Resolved]
  - Vision blurred [Recovered/Resolved]
  - Sepsis [Recovered/Resolved]
  - Myalgia [Recovered/Resolved]
  - Renal cancer [Not Recovered/Not Resolved]
  - Anxiety [Recovered/Resolved]
